FAERS Safety Report 4490995-2 (Version None)
Quarter: 2004Q4

REPORT INFORMATION
  Report Type: 
  Country: None (occurrence: None)
  Receive Date: 20041027
  Receipt Date: 20021021
  Transmission Date: 20050328
  Serious: Yes (Other)
  Sender: FDA-Public Use
  Company Number: 2004240093FR

PATIENT
  Age: 41 Year
  Sex: Female

DRUGS (1)
  1. TRELSTAR DEPOT [Suspect]
     Indication: IN VITRO FERTILISATION
     Dosage: 3 MG,SINGLE INJECTION,INTRAMUSCULAR
     Route: 030
     Dates: start: 20040416, end: 20040416

REACTIONS (1)
  - HEPATITIS [None]
